FAERS Safety Report 6011533-9 (Version None)
Quarter: 2008Q4

REPORT INFORMATION
  Report Type: 
  Country: None (occurrence: None)
  Receive Date: 20081218
  Receipt Date: 20080905
  Transmission Date: 20090506
  Serious: No
  Sender: FDA-Public Use
  Company Number: US-ASTRAZENECA-2008UW18348

PATIENT
  Age: 64 Year
  Sex: Female
  Weight: 45.4 kg

DRUGS (4)
  1. CRESTOR [Suspect]
     Indication: BLOOD CHOLESTEROL INCREASED
     Route: 048
  2. AVAPRO [Concomitant]
  3. ATENOLOL [Concomitant]
  4. LEVOXYL [Concomitant]

REACTIONS (4)
  - CONSTIPATION [None]
  - DIARRHOEA [None]
  - ERUCTATION [None]
  - NAUSEA [None]
